FAERS Safety Report 5661591-6 (Version None)
Quarter: 2008Q1

REPORT INFORMATION
  Report Type: 
  Country: None (occurrence: None)
  Receive Date: 20080312
  Receipt Date: 20080307
  Transmission Date: 20080703
  Serious: Yes (Death)
  Sender: FDA-Public Use
  Company Number: RU-AVENTIS-200812120GDDC

PATIENT
  Age: 65 Year
  Sex: Female

DRUGS (5)
  1. ARAVA [Suspect]
     Indication: RHEUMATOID ARTHRITIS
     Route: 048
     Dates: start: 20050301, end: 20050301
  2. ARAVA [Suspect]
     Route: 048
     Dates: start: 20050301
  3. METHYLPREDNISOLONE [Concomitant]
     Indication: RHEUMATOID ARTHRITIS
     Dosage: DOSE: 1/4 TO 3 TABS
     Route: 048
     Dates: start: 19960101
  4. METHOTREXATUM [Concomitant]
     Indication: RHEUMATOID ARTHRITIS
     Dosage: DOSE: 0-5 TAB
     Route: 048
     Dates: start: 19990101
  5. EGILOK [Concomitant]
     Dosage: DOSE: 1 TABLET
     Route: 048
     Dates: start: 20050101

REACTIONS (1)
  - CARDIAC FAILURE ACUTE [None]
